FAERS Safety Report 21107558 (Version 1)
Quarter: 2022Q3

REPORT INFORMATION
  Report Type: Spontaneous
  Country: US (occurrence: None)
  Receive Date: 20220720
  Receipt Date: 20220720
  Transmission Date: 20221027
  Serious: Yes (Hospitalization)
  Sender: FDA-Public Use
  Company Number: None

PATIENT
  Age: 65 Year
  Sex: Female

DRUGS (1)
  1. EVEROLIMUS [Suspect]
     Active Substance: EVEROLIMUS
     Dosage: FREQUENCY : DAILY;?
     Route: 048
     Dates: start: 202111

REACTIONS (6)
  - Hypertension [None]
  - Dizziness [None]
  - Vertigo [None]
  - Headache [None]
  - Constipation [None]
  - Neoplasm malignant [None]

NARRATIVE: CASE EVENT DATE: 20220620
